FAERS Safety Report 5096460-6 (Version None)
Quarter: 2006Q3

REPORT INFORMATION
  Report Type: 
  Country: None (occurrence: None)
  Receive Date: 20060830
  Receipt Date: 20060816
  Transmission Date: 20061208
  Serious: Yes (Other)
  Sender: FDA-Public Use
  Company Number: GXKR2006GB04861

PATIENT
  Age: 57 Year
  Sex: Male

DRUGS (4)
  1. LORAZEPAM [Suspect]
     Dosage: 1 MG, PRN, ORAL
     Route: 048
  2. CLOZAPINE [Suspect]
     Indication: SCHIZOPHRENIA
     Dosage: SEE IMAGE
     Route: 048
     Dates: start: 20060317, end: 20060324
  3. CLOZAPINE [Suspect]
     Indication: SCHIZOPHRENIA
     Dosage: SEE IMAGE
     Route: 048
     Dates: start: 20050407, end: 20060705
  4. VALPROIC ACID [Concomitant]

REACTIONS (5)
  - DYSPNOEA [None]
  - HEART RATE IRREGULAR [None]
  - SOMNOLENCE [None]
  - TACHYCARDIA [None]
  - VENTRICULAR EXTRASYSTOLES [None]
